FAERS Safety Report 14798742 (Version 1)
Quarter: 2018Q2

REPORT INFORMATION
  Report Type: Spontaneous
  Country: GB (occurrence: GB)
  Receive Date: 20180424
  Receipt Date: 20180424
  Transmission Date: 20180711
  Serious: Yes (Other)
  Sender: FDA-Public Use
  Company Number: GB-TESARO, INC-GB-2018TSO01998

PATIENT

DRUGS (3)
  1. AMLODIPINE [Concomitant]
     Active Substance: AMLODIPINE BESYLATE
     Indication: PRODUCT USED FOR UNKNOWN INDICATION
     Dosage: 300 MG, UNK
     Route: 048
  2. ZEJULA [Suspect]
     Active Substance: NIRAPARIB
     Dosage: 100 MG, UNK
     Route: 048
     Dates: start: 20180416
  3. ZEJULA [Suspect]
     Active Substance: NIRAPARIB
     Indication: OVARIAN CANCER
     Dosage: 300 MG, UNK
     Route: 048
     Dates: start: 20180405, end: 20180412

REACTIONS (9)
  - White blood cell count decreased [Unknown]
  - Headache [Recovered/Resolved]
  - Palpitations [Recovered/Resolved]
  - Blood pressure abnormal [Recovered/Resolved]
  - Platelet count decreased [Recovered/Resolved]
  - Neutrophil count abnormal [Recovered/Resolved]
  - Fatigue [Recovered/Resolved]
  - Dizziness [Recovered/Resolved]
  - Haemoglobin abnormal [Not Recovered/Not Resolved]

NARRATIVE: CASE EVENT DATE: 20180405
